FAERS Safety Report 25343150 (Version 1)
Quarter: 2025Q2

REPORT INFORMATION
  Report Type: Spontaneous
  Country: US (occurrence: None)
  Receive Date: 20250520
  Receipt Date: 20250520
  Transmission Date: 20250717
  Serious: Yes (Hospitalization, Disabling, Other)
  Sender: FDA-CTU
  Company Number: None

PATIENT
  Age: 37 Year
  Sex: Female
  Weight: 47.7 kg

DRUGS (19)
  1. SEMAX [Suspect]
     Active Substance: SEMAX
     Indication: Disturbance in attention
     Dosage: OTHER QUANTITY : 1 DROP(S);?FREQUENCY : DAILY;?OTHER ROUTE : INTRANASALY;?
     Route: 050
     Dates: start: 20240508, end: 20240508
  2. NALTREXONE [Concomitant]
     Active Substance: NALTREXONE
  3. Savella (milnacipran) [Concomitant]
  4. Journavx (gabapentin + naltrexone combo) [Concomitant]
  5. LYRICA [Concomitant]
     Active Substance: PREGABALIN
  6. HYDROXYZINE [Concomitant]
     Active Substance: HYDROXYZINE HYDROCHLORIDE
  7. ALPRAZOLAM [Concomitant]
     Active Substance: ALPRAZOLAM
  8. TIZANIDINE [Concomitant]
     Active Substance: TIZANIDINE
  9. PENTOXIFYLLINE [Concomitant]
     Active Substance: PENTOXIFYLLINE
  10. topical heparin cream [Concomitant]
  11. TYRVAYA [Concomitant]
     Active Substance: VARENICLINE TARTRATE
  12. HEPARIN [Concomitant]
     Active Substance: HEPARIN SODIUM
  13. VITAMIN D NOS [Concomitant]
     Active Substance: CHOLECALCIFEROL\ERGOCALCIFEROL
  14. BORON [Concomitant]
     Active Substance: BORON
  15. ZINC [Concomitant]
     Active Substance: ZINC
  16. FISH OIL [Concomitant]
     Active Substance: FISH OIL
  17. MAGNESIUM [Concomitant]
     Active Substance: MAGNESIUM
  18. DIETARY SUPPLEMENT\RESVERATROL [Concomitant]
     Active Substance: DIETARY SUPPLEMENT\RESVERATROL
  19. glutahione [Concomitant]

REACTIONS (2)
  - Eye pain [None]
  - Product advertising issue [None]

NARRATIVE: CASE EVENT DATE: 20240508
